FAERS Safety Report 12491113 (Version 1)
Quarter: 2016Q2

REPORT INFORMATION
  Report Type: Spontaneous
  Country: US (occurrence: US)
  Receive Date: 20160623
  Receipt Date: 20160623
  Transmission Date: 20160815
  Serious: Yes (Other)
  Sender: FDA-Public Use
  Company Number: US-UCBSA-2016022024

PATIENT
  Age: 64 Year
  Sex: Male

DRUGS (11)
  1. PREGABALIN. [Suspect]
     Active Substance: PREGABALIN
     Indication: PRODUCT USED FOR UNKNOWN INDICATION
     Dosage: 300 MG DAILY BY NG TUBE
  2. PHENYTOIN. [Concomitant]
     Active Substance: PHENYTOIN
     Indication: PRODUCT USED FOR UNKNOWN INDICATION
  3. VIMPAT [Suspect]
     Active Substance: LACOSAMIDE
     Indication: EPILEPSY
     Dosage: 200 MG, (IN 50 ML OF NS INJECTED OVER 30 MIN IV)
     Route: 042
  4. VIMPAT [Suspect]
     Active Substance: LACOSAMIDE
     Dosage: 100 MG, 2X/DAY (BID)
     Route: 042
  5. PREGABALIN. [Suspect]
     Active Substance: PREGABALIN
     Dosage: 150 MG, 3X/DAY (TID)
  6. LEVETIRACETAM. [Suspect]
     Active Substance: LEVETIRACETAM
     Dosage: DOSE INCREASE
  7. LEVETIRACETAM. [Suspect]
     Active Substance: LEVETIRACETAM
     Indication: SEIZURE
     Dosage: 3500 MG
  8. PREGABALIN. [Suspect]
     Active Substance: PREGABALIN
     Dosage: DOSE INCREASE
  9. PREGABALIN. [Suspect]
     Active Substance: PREGABALIN
     Dosage: REDUCED BY 50%
  10. LEVETIRACETAM. [Suspect]
     Active Substance: LEVETIRACETAM
     Dosage: 1500 MG, 2X/DAY (BID)
     Route: 042
  11. LORAZEPAM. [Concomitant]
     Active Substance: LORAZEPAM
     Indication: SEIZURE
     Dosage: 2 MG
     Route: 042

REACTIONS (8)
  - Status epilepticus [Unknown]
  - Adverse event [Unknown]
  - Drug ineffective [Unknown]
  - Complex partial seizures [Unknown]
  - Overdose [Unknown]
  - Ataxia [Recovered/Resolved]
  - Microangiopathy [Unknown]
  - Off label use [Unknown]
